FAERS Safety Report 14659593 (Version 13)
Quarter: 2019Q3

REPORT INFORMATION
  Report Type: Spontaneous
  Country: US (occurrence: US)
  Receive Date: 20180320
  Receipt Date: 20190925
  Transmission Date: 20191004
  Serious: No
  Sender: FDA-Public Use
  Company Number: US-PFIZER INC-2018111798

PATIENT
  Age: 53 Year
  Sex: Female
  Weight: 85 kg

DRUGS (12)
  1. LYRICA [Suspect]
     Active Substance: PREGABALIN
     Indication: NERVE INJURY
     Dosage: 450 MG, DAILY (9 OF THE 50 MG CAPSULES)
     Route: 048
     Dates: start: 201708
  2. LYRICA [Suspect]
     Active Substance: PREGABALIN
     Dosage: UNK 100 (UNIT UNSPECIFIED)
  3. LYRICA [Suspect]
     Active Substance: PREGABALIN
     Dosage: UNK, 1X/DAY
     Dates: start: 2018
  4. SERTRALINE [Concomitant]
     Active Substance: SERTRALINE HYDROCHLORIDE
     Indication: PAIN
     Dosage: 50 MG, 1X/DAY
     Route: 048
     Dates: start: 201801
  5. LYRICA [Suspect]
     Active Substance: PREGABALIN
     Dosage: 100 MG, 3X/DAY
     Route: 048
     Dates: start: 201711
  6. LYRICA [Suspect]
     Active Substance: PREGABALIN
     Dosage: 75 MG, 2X/DAY
     Route: 048
  7. LOSARTAN. [Concomitant]
     Active Substance: LOSARTAN
     Indication: BLOOD PRESSURE ABNORMAL
     Dosage: UNK, 1X/DAY (80/12.5 HCTZ)
  8. LYRICA [Suspect]
     Active Substance: PREGABALIN
     Dosage: UNK 150 (UNIT UNSPECIFIED)
  9. LYRICA [Suspect]
     Active Substance: PREGABALIN
     Dosage: 75 MG, 4X/DAY
     Route: 048
  10. LYRICA [Suspect]
     Active Substance: PREGABALIN
     Dosage: 150 MG, 4X/DAY (3 CAPSULES, EVERY 6 HOURS)
     Route: 048
  11. LYRICA [Suspect]
     Active Substance: PREGABALIN
     Dosage: UNK 300 (UNIT UNSPECIFIED)
  12. LYRICA [Suspect]
     Active Substance: PREGABALIN
     Dosage: 100 MG, 3X/DAY
     Dates: start: 201805

REACTIONS (6)
  - Asthenia [Not Recovered/Not Resolved]
  - Thinking abnormal [Unknown]
  - Speech disorder [Unknown]
  - Skin discolouration [Not Recovered/Not Resolved]
  - Expired product administered [Unknown]
  - Malaise [Unknown]

NARRATIVE: CASE EVENT DATE: 201711
